FAERS Safety Report 6329717-9 (Version None)
Quarter: 2009Q3

REPORT INFORMATION
  Report Type: 
  Country: None (occurrence: None)
  Receive Date: 20090826
  Receipt Date: 20090817
  Transmission Date: 20100115
  Serious: Yes (Other)
  Sender: FDA-Public Use
  Company Number: US-SANOFI-SYNTHELABO-A03200903623

PATIENT
  Sex: Male

DRUGS (2)
  1. AMBIEN CR [Suspect]
     Indication: INSOMNIA
     Route: 048
     Dates: start: 20040101
  2. ALCOHOL [Suspect]
     Indication: DRUG USE FOR UNKNOWN INDICATION
     Dosage: TWO BEERS
     Route: 048
     Dates: start: 20081001

REACTIONS (4)
  - AMNESIA [None]
  - DEREALISATION [None]
  - HOMICIDE [None]
  - SOMNAMBULISM [None]
